FAERS Safety Report 7464456-2 (Version None)
Quarter: 2011Q2

REPORT INFORMATION
  Report Type: 
  Country: None (occurrence: None)
  Receive Date: 20110509
  Receipt Date: 20110504
  Transmission Date: 20111010
  Serious: No
  Sender: FDA-Public Use
  Company Number: US-PFIZER INC-2011096376

PATIENT
  Sex: Male
  Weight: 75 kg

DRUGS (4)
  1. CHANTIX [Suspect]
     Dosage: 0.5 MG, 2X/DAY
     Route: 048
     Dates: start: 20110401
  2. PAXIL [Concomitant]
     Indication: ANXIETY
     Dosage: UNK
  3. PAXIL [Concomitant]
     Indication: DEPRESSION
  4. CHANTIX [Suspect]
     Indication: SMOKING CESSATION THERAPY
     Dosage: 0.5 MG, 1X/DAY
     Route: 048
     Dates: start: 20110427, end: 20110401

REACTIONS (1)
  - NAUSEA [None]
